FAERS Safety Report 7747729-5 (Version None)
Quarter: 2011Q3

REPORT INFORMATION
  Report Type: 
  Country: None (occurrence: None)
  Receive Date: 20110913
  Receipt Date: 20110906
  Transmission Date: 20111222
  Serious: Yes (Life-Threatening)
  Sender: FDA-Public Use
  Company Number: JP-ABBOTT-08P-087-0490527-00

PATIENT
  Age: 76 Year
  Sex: Female
  Weight: 44 kg

DRUGS (11)
  1. PROPOFOL [Concomitant]
     Indication: INDUCTION OF ANAESTHESIA
     Route: 042
     Dates: start: 20071119, end: 20071119
  2. OXYGEN [Concomitant]
     Indication: INDUCTION OF ANAESTHESIA
     Dosage: PER MIN
     Route: 055
  3. SEVOFLURANE [Suspect]
     Dosage: OVER 5 MIN
     Route: 055
     Dates: start: 20071119, end: 20071119
  4. HEPARIN SODIUM [Concomitant]
     Indication: PRODUCT USED FOR UNKNOWN INDICATION
     Dates: start: 20071119, end: 20071119
  5. DICLOFENAC SODIUM [Concomitant]
     Indication: ANALGESIC THERAPY
     Route: 054
     Dates: start: 20071119, end: 20071119
  6. SEVOFLURANE [Suspect]
     Dosage: OVER 5 MIN
     Route: 055
     Dates: start: 20071119, end: 20071119
  7. VECURONIUM BROMIDE [Concomitant]
     Indication: INDUCTION OF ANAESTHESIA
     Route: 042
     Dates: start: 20071119, end: 20071119
  8. FENTANYL [Concomitant]
     Indication: INDUCTION OF ANAESTHESIA
     Route: 042
     Dates: start: 20071119, end: 20071119
  9. NITROGLYCERIN [Concomitant]
     Indication: PRODUCT USED FOR UNKNOWN INDICATION
     Route: 062
     Dates: start: 20071119, end: 20071119
  10. SEVOFLURANE [Suspect]
     Indication: INDUCTION OF ANAESTHESIA
     Dosage: OVER 10 MIN
     Route: 055
     Dates: start: 20071119, end: 20071119
  11. MEXAN [Suspect]
     Indication: ANAESTHESIA
     Route: 042
     Dates: start: 20071119, end: 20071119

REACTIONS (4)
  - SICK SINUS SYNDROME [None]
  - SUPRAVENTRICULAR TACHYCARDIA [None]
  - ATRIAL FIBRILLATION [None]
  - PULSE ABSENT [None]
